FAERS Safety Report 22062927 (Version 1)
Quarter: 2023Q1

REPORT INFORMATION
  Report Type: Spontaneous
  Country: TW (occurrence: TW)
  Receive Date: 20230306
  Receipt Date: 20230306
  Transmission Date: 20230418
  Serious: Yes (Other)
  Sender: FDA-Public Use
  Company Number: TW-AMGEN-TWNSP2023037273

PATIENT
  Age: 66 Year
  Sex: Female

DRUGS (5)
  1. XGEVA [Suspect]
     Active Substance: DENOSUMAB
     Indication: Metastases to bone
     Dosage: UNK
     Route: 065
  2. BEVACIZUMAB [Suspect]
     Active Substance: BEVACIZUMAB
     Indication: Non-small cell lung cancer
     Dosage: 7.5 MILLIGRAM PER SQUARE METRE, Q3WK
     Route: 042
     Dates: start: 202103
  3. ATEZOLIZUMAB [Concomitant]
     Active Substance: ATEZOLIZUMAB
     Indication: Non-small cell lung cancer
     Dosage: 1500 MILLIGRAM PER SQUARE METRE, Q3WK
     Route: 042
     Dates: start: 202103
  4. PEMETREXED [Concomitant]
     Active Substance: PEMETREXED
     Indication: Non-small cell lung cancer
     Dosage: 500 MILLIGRAM PER SQUARE METRE, Q3WK
     Route: 042
     Dates: start: 202103
  5. CISPLATIN [Concomitant]
     Active Substance: CISPLATIN
     Indication: Non-small cell lung cancer
     Dosage: 75 MILLIGRAM PER SQUARE METRE, Q3WK
     Route: 042
     Dates: start: 202103

REACTIONS (7)
  - Metastases to bone [Recovering/Resolving]
  - Therapy partial responder [Unknown]
  - Drug ineffective [Unknown]
  - Myositis [Unknown]
  - Blood creatine phosphokinase increased [Unknown]
  - Dizziness [Unknown]
  - Headache [Unknown]

NARRATIVE: CASE EVENT DATE: 20210101
